FAERS Safety Report 23969108 (Version 3)
Quarter: 2024Q3

REPORT INFORMATION
  Report Type: Spontaneous
  Country: US (occurrence: None)
  Receive Date: 20240612
  Receipt Date: 20240724
  Transmission Date: 20241017
  Serious: Yes (Other)
  Sender: ASTRAZENECA
  Company Number: 2024A130129

PATIENT
  Sex: Female

DRUGS (1)
  1. SAPHNELO [Suspect]
     Active Substance: ANIFROLUMAB-FNIA
     Indication: Neuropsychiatric lupus
     Route: 041

REACTIONS (10)
  - Seizure [Unknown]
  - Brain injury [Unknown]
  - Renal failure [Unknown]
  - Foot fracture [Unknown]
  - Ankle fracture [Unknown]
  - Lower limb fracture [Unknown]
  - Disorientation [Unknown]
  - Product prescribing issue [Unknown]
  - Intentional dose omission [Unknown]
  - Wrong technique in device usage process [Unknown]
